FAERS Safety Report 5054790-8 (Version None)
Quarter: 2006Q2

REPORT INFORMATION
  Report Type: 
  Country: None (occurrence: None)
  Receive Date: 20060614
  Receipt Date: 20060410
  Transmission Date: 20061013
  Serious: No
  Sender: FDA-Public Use
  Company Number: US200604001530

PATIENT
  Age: 44 Year
  Sex: Male

DRUGS (2)
  1. CIALIS [Suspect]
     Indication: OFF LABEL USE
     Dosage: 10 MG, DAILY (1/D),
     Dates: start: 20060409
  2. ALLEGRA [Concomitant]

REACTIONS (2)
  - DRUG INEFFECTIVE [None]
  - HYPOAESTHESIA [None]
